FAERS Safety Report 21824982 (Version 4)
Quarter: 2023Q1

REPORT INFORMATION
  Report Type: Spontaneous
  Country: PT (occurrence: PT)
  Receive Date: 20230105
  Receipt Date: 20230302
  Transmission Date: 20230418
  Serious: Yes (Hospitalization)
  Sender: FDA-Public Use
  Company Number: PT-TEVA-2022-PT-2842281

PATIENT
  Age: 66 Year
  Sex: Female

DRUGS (4)
  1. QUETIAPINE [Suspect]
     Active Substance: QUETIAPINE
     Indication: Major depression
     Dosage: 600MG
     Route: 065
  2. OLANZAPINE [Suspect]
     Active Substance: OLANZAPINE
     Indication: Withdrawal syndrome
     Dosage: 5 MILLIGRAM DAILY; ONCE A DAY , LOW DOSE
     Route: 065
  3. OLANZAPINE [Suspect]
     Active Substance: OLANZAPINE
     Indication: Prophylaxis
  4. ESCITALOPRAM [Concomitant]
     Active Substance: ESCITALOPRAM OXALATE
     Indication: Major depression
     Dosage: 20 MG
     Route: 065

REACTIONS (5)
  - Oedema peripheral [Recovering/Resolving]
  - Catatonia [Recovering/Resolving]
  - Withdrawal syndrome [Unknown]
  - Urinary retention [Recovering/Resolving]
  - Drug ineffective [Unknown]
